FAERS Safety Report 13720177 (Version 1)
Quarter: 2017Q3

REPORT INFORMATION
  Report Type: Spontaneous
  Country: GB (occurrence: GB)
  Receive Date: 20170706
  Receipt Date: 20170706
  Transmission Date: 20171127
  Serious: Yes (Other)
  Sender: FDA-Public Use
  Company Number: GB-CONCORDIA PHARMACEUTICALS INC.-GSH201706-003876

PATIENT
  Age: 44 Year
  Sex: Female

DRUGS (6)
  1. HYDROXYCHLOROQUINE [Suspect]
     Active Substance: HYDROXYCHLOROQUINE
     Indication: RHEUMATOID ARTHRITIS
     Route: 065
  2. OMEPRAZOLE. [Concomitant]
     Active Substance: OMEPRAZOLE
  3. FOLIC ACID. [Concomitant]
     Active Substance: FOLIC ACID
  4. LEFLUNOMIDE. [Concomitant]
     Active Substance: LEFLUNOMIDE
  5. METHOTREXATE. [Concomitant]
     Active Substance: METHOTREXATE
  6. LORATADINE. [Concomitant]
     Active Substance: LORATADINE

REACTIONS (7)
  - Retinopathy [Unknown]
  - Visual impairment [Unknown]
  - Fundoscopy abnormal [Unknown]
  - Maculopathy [Unknown]
  - Visual field tests abnormal [Unknown]
  - Visual field defect [Unknown]
  - Retinogram abnormal [Unknown]
